FAERS Safety Report 8435250-0 (Version None)
Quarter: 2012Q2

REPORT INFORMATION
  Report Type: 
  Country: None (occurrence: None)
  Receive Date: 20120614
  Receipt Date: 20120531
  Transmission Date: 20120825
  Serious: Yes (Death)
  Sender: FDA-Public Use
  Company Number: US-MYLANLABS-2012S1011376

PATIENT
  Age: 62 Year
  Sex: Female
  Weight: 121 kg

DRUGS (4)
  1. GABAPENTIN [Suspect]
     Route: 065
  2. SIMVASTATIN [Concomitant]
     Route: 065
  3. FLUOXETINE [Concomitant]
     Route: 065
  4. CLONAZEPAM [Concomitant]
     Route: 065

REACTIONS (3)
  - INTENTIONAL OVERDOSE [None]
  - TOXICITY TO VARIOUS AGENTS [None]
  - COMPLETED SUICIDE [None]
